FAERS Safety Report 8446254-6 (Version None)
Quarter: 2012Q2

REPORT INFORMATION
  Report Type: 
  Country: None (occurrence: None)
  Receive Date: 20120618
  Receipt Date: 20120614
  Transmission Date: 20120825
  Serious: Yes (Other)
  Sender: FDA-Public Use
  Company Number: US-PFIZER INC-2012144548

PATIENT
  Sex: Female
  Weight: 56.236 kg

DRUGS (6)
  1. LITHIUM [Concomitant]
     Dosage: 300 MG, UNK
  2. AMBIEN [Concomitant]
     Indication: INSOMNIA
     Dosage: 10 MG, UNK
  3. CLONAZEPAM [Concomitant]
     Indication: ANXIETY
     Dosage: 1 MG, 2X/DAY
  4. GEODON [Suspect]
     Dosage: UNK
     Route: 048
     Dates: start: 20110701, end: 20110801
  5. GEODON [Suspect]
     Indication: BIPOLAR DISORDER
     Dosage: UNK
     Route: 048
     Dates: start: 20110701, end: 20110701
  6. KLONOPIN [Concomitant]
     Dosage: UNK, 1X/DAY

REACTIONS (12)
  - ACTIVITIES OF DAILY LIVING IMPAIRED [None]
  - BLOOD GLUCOSE INCREASED [None]
  - FEELING ABNORMAL [None]
  - NERVOUSNESS [None]
  - MENTAL DISORDER [None]
  - CRYING [None]
  - RESTLESS LEGS SYNDROME [None]
  - PANIC ATTACK [None]
  - MOOD ALTERED [None]
  - QUALITY OF LIFE DECREASED [None]
  - INSOMNIA [None]
  - ANXIETY [None]
